FAERS Safety Report 9786181 (Version 5)
Quarter: 2020Q1

REPORT INFORMATION
  Report Type: Spontaneous
  Country: BR (occurrence: BR)
  Receive Date: 20131227
  Receipt Date: 20200305
  Transmission Date: 20200409
  Serious: Yes (Life-Threatening, Hospitalization, Other)
  Sender: FDA-Public Use
  Company Number: BR-ELI_LILLY_AND_COMPANY-BR201312008536

PATIENT
  Age: 66 Year
  Sex: Female

DRUGS (4)
  1. FORTEO [Suspect]
     Active Substance: TERIPARATIDE
     Indication: PARATHYROIDECTOMY
     Dosage: 1 DF, QD
     Route: 065
     Dates: start: 2007
  2. CALCIUM [Suspect]
     Active Substance: CALCIUM
     Indication: PRODUCT USED FOR UNKNOWN INDICATION
     Dosage: UNK, UNKNOWN
     Route: 065
  3. FORTEO [Suspect]
     Active Substance: TERIPARATIDE
     Indication: OSTEOPOROSIS
     Dosage: 1 DF, BID
     Route: 065
  4. VITAMINA D [Concomitant]
     Indication: PRODUCT USED FOR UNKNOWN INDICATION
     Dosage: UNK, UNKNOWN
     Route: 065

REACTIONS (20)
  - Asthenopia [Unknown]
  - Muscle spasms [Unknown]
  - Product storage error [Unknown]
  - Hypocalcaemia [Unknown]
  - Functional gastrointestinal disorder [Unknown]
  - Blood pressure increased [Unknown]
  - Intentional overdose [Unknown]
  - Tetany [Unknown]
  - Overdose [Unknown]
  - Arrhythmia [Unknown]
  - Incorrect product administration duration [Unknown]
  - Muscle contractions involuntary [Unknown]
  - Diabetes mellitus [Unknown]
  - Dehydration [Unknown]
  - Polyuria [Unknown]
  - Diarrhoea [Unknown]
  - Abdominal distension [Unknown]
  - Cerebral disorder [Unknown]
  - Memory impairment [Unknown]
  - Drug ineffective [Unknown]
